FAERS Safety Report 19444110 (Version 1)
Quarter: 2021Q2

REPORT INFORMATION
  Report Type: Spontaneous
  Country: US (occurrence: US)
  Receive Date: 20210621
  Receipt Date: 20210621
  Transmission Date: 20210717
  Serious: Yes (Other)
  Sender: FDA-Public Use
  Company Number: US-GLAXOSMITHKLINE-US2021AMR130028

PATIENT
  Sex: Male

DRUGS (6)
  1. BUPROPION. [Suspect]
     Active Substance: BUPROPION
     Indication: DEPRESSION
     Dosage: UNK
  2. DAPSONE. [Suspect]
     Active Substance: DAPSONE
     Indication: RASH PRURITIC
     Dosage: UNK
  3. HYDROXYCHLOROQUINE [Suspect]
     Active Substance: HYDROXYCHLOROQUINE
     Indication: SYSTEMIC LUPUS ERYTHEMATOSUS
  4. HYDROXYCHLOROQUINE [Suspect]
     Active Substance: HYDROXYCHLOROQUINE
     Indication: RASH PRURITIC
     Dosage: UNK
  5. BUPROPION. [Suspect]
     Active Substance: BUPROPION
     Indication: SMOKING CESSATION THERAPY
  6. DAPSONE. [Suspect]
     Active Substance: DAPSONE
     Indication: SYSTEMIC LUPUS ERYTHEMATOSUS

REACTIONS (5)
  - Rash papular [Recovered/Resolved]
  - Lupus-like syndrome [Recovered/Resolved]
  - Therapy non-responder [Unknown]
  - Condition aggravated [Recovered/Resolved]
  - Rash pruritic [Recovered/Resolved]
